FAERS Safety Report 7685816-0 (Version None)
Quarter: 2011Q3

REPORT INFORMATION
  Report Type: 
  Country: None (occurrence: None)
  Receive Date: 20110815
  Receipt Date: 20110815
  Transmission Date: 20111222
  Serious: Yes (Life-Threatening)
  Sender: FDA-Public Use
  Company Number: None

PATIENT
  Sex: Female
  Weight: 99.79 kg

DRUGS (1)
  1. DARVOCET [Suspect]
     Indication: MIGRAINE
     Dates: start: 19990501, end: 20001129

REACTIONS (6)
  - ARRHYTHMIA [None]
  - EXTRASYSTOLES [None]
  - PRODUCT QUALITY ISSUE [None]
  - CARDIAC ARREST [None]
  - PROCEDURAL COMPLICATION [None]
  - MATERNAL EXPOSURE DURING PREGNANCY [None]
